FAERS Safety Report 9380409 (Version 1)
Quarter: 2013Q2

REPORT INFORMATION
  Report Type: Spontaneous
  Country: US (occurrence: None)
  Receive Date: 20130628
  Receipt Date: 20130628
  Transmission Date: 20140414
  Serious: Yes (Other)
  Sender: FDA-Public Use
  Company Number: US-2013-11203

PATIENT
  Age: 37 Year
  Sex: Female

DRUGS (1)
  1. OPC-41061 [Suspect]
     Indication: CONGENITAL CYSTIC KIDNEY DISEASE
     Route: 048
     Dates: start: 20130314, end: 20130613

REACTIONS (1)
  - Haemoglobin decreased [None]
